FAERS Safety Report 25497631 (Version 1)
Quarter: 2025Q3

REPORT INFORMATION
  Report Type: Report from Study
  Country: US (occurrence: US)
  Receive Date: 20250701
  Receipt Date: 20250701
  Transmission Date: 20251021
  Serious: Yes (Other)
  Sender: NOVARTIS
  Company Number: US-002147023-NVSC2025US103305

PATIENT
  Sex: Male

DRUGS (1)
  1. ENTRESTO [Suspect]
     Active Substance: SACUBITRIL\VALSARTAN
     Indication: Product used for unknown indication
     Dosage: 97 MG, BID (97-103MG)
     Route: 048
     Dates: start: 20240613

REACTIONS (5)
  - Cardiac failure congestive [Unknown]
  - Lung disorder [Unknown]
  - Dyspnoea [Unknown]
  - Renal disorder [Unknown]
  - Product dose omission issue [Unknown]
